FAERS Safety Report 4825318-X (Version None)
Quarter: 2005Q4

REPORT INFORMATION
  Report Type: 
  Country: None (occurrence: None)
  Receive Date: 20051111
  Receipt Date: 20050922
  Transmission Date: 20060501
  Serious: Yes (Hospitalization)
  Sender: FDA-Public Use
  Company Number: DE-ABBOTT-05P-062-0311957-00

PATIENT
  Sex: Female

DRUGS (7)
  1. HUMIRA [Suspect]
     Indication: DRUG USE FOR UNKNOWN INDICATION
     Route: 058
     Dates: start: 20040201, end: 20050701
  2. HUMIRA [Suspect]
  3. LEFLUNOMIDE [Concomitant]
     Indication: DRUG USE FOR UNKNOWN INDICATION
     Dates: start: 19991101, end: 20040601
  4. LEFLUNOMIDE [Concomitant]
     Dates: start: 20050201
  5. CHLOROQUINE PHOSPHATE [Concomitant]
     Indication: DRUG USE FOR UNKNOWN INDICATION
     Dates: start: 19990601
  6. TRIAMCINOLONE [Concomitant]
     Indication: DRUG USE FOR UNKNOWN INDICATION
     Dates: end: 20040801
  7. TRIAMCINOLONE [Concomitant]
     Dates: start: 20040901

REACTIONS (4)
  - ACTIVITIES OF DAILY LIVING IMPAIRED [None]
  - BRONCHITIS ACUTE [None]
  - IMPAIRED HEALING [None]
  - TOE DEFORMITY [None]
